FAERS Safety Report 4274948-5 (Version None)
Quarter: 2004Q1

REPORT INFORMATION
  Report Type: 
  Country: None (occurrence: None)
  Receive Date: 20040120
  Receipt Date: 20040112
  Transmission Date: 20041129
  Serious: Yes (Death)
  Sender: FDA-Public Use
  Company Number: 2004S1000103

PATIENT
  Age: 15 Year
  Sex: Male
  Weight: 47.6277 kg

DRUGS (4)
  1. FLUVOXAMINE MALEATE [Suspect]
  2. ALPRAZOLAM [Concomitant]
  3. ARIPIPRAZOLE [Concomitant]
  4. DIPHENHYDRAMINE HCL [Concomitant]

REACTIONS (6)
  - AUTISM [None]
  - DRUG TOXICITY [None]
  - MENTAL RETARDATION SEVERITY UNSPECIFIED [None]
  - OEDEMA [None]
  - OVERDOSE [None]
  - PULMONARY CONGESTION [None]
